FAERS Safety Report 15384797 (Version 1)
Quarter: 2018Q3

REPORT INFORMATION
  Report Type: Spontaneous
  Country: VN (occurrence: VN)
  Receive Date: 20180914
  Receipt Date: 20180914
  Transmission Date: 20181010
  Serious: Yes (Other)
  Sender: FDA-Public Use
  Company Number: VN-ROCHE-2183507

PATIENT
  Sex: Male

DRUGS (6)
  1. MABTHERA [Suspect]
     Active Substance: RITUXIMAB
     Indication: NON-HODGKIN^S LYMPHOMA
     Route: 042
  2. CYCLOPHOSPHAMIDE. [Suspect]
     Active Substance: CYCLOPHOSPHAMIDE
     Indication: NON-HODGKIN^S LYMPHOMA
  3. FLUDARABINE [Suspect]
     Active Substance: FLUDARABINE PHOSPHATE
     Indication: NON-HODGKIN^S LYMPHOMA
     Route: 065
  4. CYCLOPHOSPHAMIDE. [Suspect]
     Active Substance: CYCLOPHOSPHAMIDE
     Indication: LYMPHOCYTIC LYMPHOMA
     Route: 065
  5. MABTHERA [Suspect]
     Active Substance: RITUXIMAB
     Indication: LYMPHOCYTIC LYMPHOMA
  6. FLUDARABINE [Suspect]
     Active Substance: FLUDARABINE PHOSPHATE
     Indication: LYMPHOCYTIC LYMPHOMA

REACTIONS (9)
  - Pleural effusion [Not Recovered/Not Resolved]
  - White blood cell count increased [Unknown]
  - Intentional product use issue [Unknown]
  - Off label use [Unknown]
  - Blood uric acid increased [Unknown]
  - Blood lactate dehydrogenase increased [Unknown]
  - Beta 2 microglobulin increased [Unknown]
  - Ascites [Unknown]
  - Atelectasis [Unknown]
